FAERS Safety Report 5930685-X (Version None)
Quarter: 2008Q4

REPORT INFORMATION
  Report Type: 
  Country: None (occurrence: None)
  Receive Date: 20081003
  Receipt Date: 20070801
  Transmission Date: 20090506
  Serious: Yes (Hospitalization)
  Sender: FDA-Public Use
  Company Number: WAES 0706USA01929

PATIENT
  Age: 3 Year
  Sex: Female

DRUGS (2)
  1. SINGULAIR [Suspect]
     Dosage: 4 MG/PO
     Route: 048
  2. SINGULAIR [Suspect]
     Dosage: PO
     Route: 048

REACTIONS (2)
  - HYPERSENSITIVITY [None]
  - OVERDOSE [None]
